FAERS Safety Report 9297018 (Version 3)
Quarter: 2013Q3

REPORT INFORMATION
  Report Type: Spontaneous
  Country: US (occurrence: US)
  Receive Date: 20130519
  Receipt Date: 20130815
  Transmission Date: 20140515
  Serious: No
  Sender: FDA-Public Use
  Company Number: US-009507513-1305USA002590

PATIENT
  Sex: Male
  Weight: 98.41 kg

DRUGS (3)
  1. PEGINTRON [Suspect]
     Indication: HEPATITIS C
     Dosage: REDIPEN, 150
     Route: 058
  2. REBETOL [Suspect]
     Indication: HEPATITIS C
     Dosage: UNK
  3. VICTRELIS [Suspect]
     Indication: HEPATITIS C
     Dosage: UNK

REACTIONS (3)
  - Drug ineffective [Unknown]
  - Wrong technique in drug usage process [Unknown]
  - Needle issue [Unknown]
